APPROVED DRUG PRODUCT: ALECENSA
Active Ingredient: ALECTINIB HYDROCHLORIDE
Strength: EQ 150MG BASE
Dosage Form/Route: CAPSULE;ORAL
Application: N208434 | Product #001
Applicant: HOFFMANN-LA ROCHE INC
Approved: Dec 11, 2015 | RLD: Yes | RS: Yes | Type: RX

PATENTS:
Patent 10350214 | Expires: Apr 24, 2035
Patent 11433076 | Expires: Apr 24, 2035
Patent 9126931 | Expires: May 29, 2031
Patent 9440922 | Expires: Jun 9, 2030
Patent 9365514 | Expires: Mar 4, 2032

EXCLUSIVITY:
Code: I-947 | Date: Apr 18, 2027
Code: ODE-477 | Date: Apr 18, 2031